FAERS Safety Report 6963536 (Version 5)
Quarter: 2012Q4

REPORT INFORMATION
  Report Type: 
  Country: US (occurrence: US)
  Receive Date: 20090408
  Receipt Date: 20121116
  Transmission Date: 20130627
  Serious: Yes (Hospitalization)
  Sender: FDA-Public Use
  Company Number: US-BAYER-200917548NA

PATIENT
  Age: 52 Year
  Sex: Female
  Weight: 61.22 kg

DRUGS (8)
  1. YAZ [Suspect]
     Indication: FIBROIDS
     Dosage: 1 DF (Daily Dose), QD, oral
     Route: 048
     Dates: start: 200810, end: 200903
  2. YAZ [Suspect]
     Indication: MENOPAUSE
  3. AZITHROMYCIN [Concomitant]
     Indication: PNEUMONIA
     Dosage: UNK
     Dates: start: 20090117
  4. VICODIN ES [Concomitant]
     Dosage: UNK, 750mg-7.5mg
     Dates: start: 20090117
  5. TERAZOL [Concomitant]
     Indication: YEAST INFECTION
     Dosage: UNK
     Dates: start: 20090210
  6. TERAZOL [Concomitant]
     Indication: VAGINAL ITCHING
  7. ADVIL [Concomitant]
     Dosage: UNK
     Route: 048
     Dates: start: 20090117
  8. AMOXICLAV [Concomitant]
     Dosage: 875 mg, UNK
     Route: 048
     Dates: start: 20090127

REACTIONS (10)
  - Pulmonary embolism [Recovered/Resolved]
  - Mood swings [None]
  - Depression [None]
  - Injury [Recovered/Resolved]
  - Pain [Recovered/Resolved]
  - Emotional distress [None]
  - General physical health deterioration [Recovered/Resolved]
  - Anxiety [None]
  - Pain [None]
  - Panic attack [None]
